FAERS Safety Report 13741939 (Version 4)
Quarter: 2023Q1

REPORT INFORMATION
  Report Type: Spontaneous
  Country: US (occurrence: US)
  Receive Date: 20170711
  Receipt Date: 20230111
  Transmission Date: 20230417
  Serious: No
  Sender: FDA-Public Use
  Company Number: US-PFIZER INC-2017298503

PATIENT
  Age: 75 Year
  Sex: Male

DRUGS (13)
  1. SUTENT [Suspect]
     Active Substance: SUNITINIB MALATE
     Indication: Renal cancer
     Dosage: 50 MG, CYCLIC (1 CAPSULE DAILY FOR 4 WEEKS ON, THEN 2 WEEKS OFF)
     Route: 048
  2. SUTENT [Suspect]
     Active Substance: SUNITINIB MALATE
     Dosage: 25 MG, CYCLIC (1 CAPSULE, DAILY 2 WEEKS ON, 2 WEEKS OFF)
     Route: 048
  3. ANUCORT-HC [Concomitant]
     Active Substance: HYDROCORTISONE ACETATE
     Dosage: 25 MG
  4. BENZONATATE [Concomitant]
     Active Substance: BENZONATATE
     Dosage: 100 MG
  5. CYANOCOBALAMIN [Concomitant]
     Active Substance: CYANOCOBALAMIN
     Dosage: 1000 UG
  6. ELIQUIS [Concomitant]
     Active Substance: APIXABAN
     Dosage: 5 MG
  7. FLUCONAZOLE [Concomitant]
     Active Substance: FLUCONAZOLE
     Dosage: 100 MG
  8. LEVOFLOXACIN [Concomitant]
     Active Substance: LEVOFLOXACIN
     Dosage: 500 MG
  9. METHYLPREDNIS [Concomitant]
     Dosage: 4 MG
  10. METOPROLOL [Concomitant]
     Active Substance: METOPROLOL
     Dosage: 25 MG
  11. NYSTATIN [Concomitant]
     Active Substance: NYSTATIN
     Dosage: UNK (SUSPENSION 100000UNIT/M)
  12. VALACYCLOVIR [Concomitant]
     Active Substance: VALACYCLOVIR HYDROCHLORIDE
     Dosage: 1 G
  13. VITAMIN D [Concomitant]
     Active Substance: VITAMIN D NOS
     Dosage: 50000 IU (E CAP 50000 UNI)

REACTIONS (4)
  - Gingival pain [Not Recovered/Not Resolved]
  - Glossodynia [Not Recovered/Not Resolved]
  - Ageusia [Not Recovered/Not Resolved]
  - Taste disorder [Not Recovered/Not Resolved]
